FAERS Safety Report 4737960-5 (Version None)
Quarter: 2005Q3

REPORT INFORMATION
  Report Type: 
  Country: None (occurrence: None)
  Receive Date: 20050805
  Receipt Date: 20050725
  Transmission Date: 20060218
  Serious: Yes (Hospitalization, Other)
  Sender: FDA-Public Use
  Company Number: 2005-07-2279

PATIENT
  Age: 53 Year
  Sex: Female

DRUGS (2)
  1. INTERFERON ALFA INJECTABLE [Suspect]
     Indication: HEPATITIS C
     Dosage: SEE IMAGE
  2. RIBAVIRIN [Suspect]
     Indication: HEPATITIS C
     Dosage: ORAL
     Route: 048

REACTIONS (12)
  - CARBOHYDRATE ANTIGEN 19-9 INCREASED [None]
  - HAEMATURIA [None]
  - LOSS OF CONSCIOUSNESS [None]
  - MENORRHAGIA [None]
  - NORMOCHROMIC NORMOCYTIC ANAEMIA [None]
  - OESOPHAGITIS [None]
  - PROTEINURIA [None]
  - PULMONARY SARCOIDOSIS [None]
  - RED BLOOD CELL SEDIMENTATION RATE INCREASED [None]
  - SARCOIDOSIS [None]
  - UTERINE CERVICAL SQUAMOUS METAPLASIA [None]
  - UTERINE ENLARGEMENT [None]
